APPROVED DRUG PRODUCT: AMIODARONE HYDROCHLORIDE
Active Ingredient: AMIODARONE HYDROCHLORIDE
Strength: 50MG/ML
Dosage Form/Route: INJECTABLE;INJECTION
Application: A076018 | Product #001
Applicant: BEDFORD LABORATORIES DIV BEN VENUE LABORATORIES INC
Approved: Oct 15, 2002 | RLD: No | RS: No | Type: DISCN